FAERS Safety Report 8841011 (Version 2)
Quarter: 2012Q4

REPORT INFORMATION
  Report Type: 
  Country: US (occurrence: US)
  Receive Date: 20121015
  Receipt Date: 20121030
  Transmission Date: 20130627
  Serious: Yes (Other)
  Sender: FDA-Public Use
  Company Number: US-ROCHE-1140485

PATIENT
  Age: 14 None
  Sex: Female
  Weight: 51.76 kg

DRUGS (5)
  1. PROTROPIN [Suspect]
     Indication: GROWTH HORMONE DEFICIENCY
     Route: 030
  2. PROTROPIN [Suspect]
     Indication: PRADER-WILLI SYNDROME
  3. PROTROPIN [Suspect]
     Indication: DWARFISM
  4. TEGRETOL [Concomitant]
     Route: 065
  5. DEPAKOTE [Concomitant]

REACTIONS (5)
  - Convulsion [Unknown]
  - Glaucoma [Unknown]
  - Rash [Recovered/Resolved]
  - Blood cholesterol increased [Unknown]
  - Blood insulin increased [Unknown]
